FAERS Safety Report 8484174-1 (Version None)
Quarter: 2012Q2

REPORT INFORMATION
  Report Type: 
  Country: None (occurrence: None)
  Receive Date: 20120402
  Receipt Date: 20111220
  Transmission Date: 20120825
  Serious: Yes (Hospitalization)
  Sender: FDA-Public Use
  Company Number: A-US2011-55835

PATIENT
  Age: 58 Year
  Sex: Female

DRUGS (3)
  1. TRACLEER [Suspect]
     Indication: PULMONARY ARTERIAL HYPERTENSION
     Dosage: , ORAL
     Route: 048
     Dates: start: 20070501
  2. COUMADIN [Concomitant]
  3. DIGOXIN [Concomitant]

REACTIONS (4)
  - CARDIAC FAILURE [None]
  - DYSPNOEA [None]
  - FLUID RETENTION [None]
  - OEDEMA PERIPHERAL [None]
